FAERS Safety Report 6115743-1 (Version None)
Quarter: 2009Q1

REPORT INFORMATION
  Report Type: 
  Country: None (occurrence: None)
  Receive Date: 20090313
  Receipt Date: 20081223
  Transmission Date: 20090719
  Serious: No
  Sender: FDA-Public Use
  Company Number: US-ABBOTT-08P-163-0487770-00

PATIENT
  Sex: Male
  Weight: 88.076 kg

DRUGS (3)
  1. HUMIRA [Suspect]
     Indication: CROHN'S DISEASE
     Dates: start: 20080401, end: 20081113
  2. ASACOL [Concomitant]
     Indication: DRUG USE FOR UNKNOWN INDICATION
  3. ATENOLOL [Concomitant]
     Indication: BLOOD PRESSURE

REACTIONS (7)
  - BLEPHAROSPASM [None]
  - CARDIAC FLUTTER [None]
  - COUGH [None]
  - EYE SWELLING [None]
  - PRODUCTIVE COUGH [None]
  - VISUAL ACUITY REDUCED [None]
  - WHEEZING [None]
